FAERS Safety Report 24194748 (Version 1)
Quarter: 2024Q3

REPORT INFORMATION
  Report Type: Spontaneous
  Country: US (occurrence: None)
  Receive Date: 20240808
  Receipt Date: 20240808
  Transmission Date: 20241017
  Serious: Yes (Hospitalization)
  Sender: Public
  Company Number: None

PATIENT
  Age: 41 Year
  Sex: Female

DRUGS (6)
  1. TACROLIMUS [Suspect]
     Active Substance: TACROLIMUS
     Indication: Renal transplant
     Dosage: 0.5MG BID ORAL?
     Route: 048
     Dates: start: 20191211
  2. SIROLIMUS [Suspect]
     Active Substance: SIROLIMUS
     Indication: Renal transplant
     Dosage: 1 MG DAILY ORAL
     Dates: start: 20191211
  3. LOSARTAN [Concomitant]
     Active Substance: LOSARTAN\LOSARTAN POTASSIUM
  4. METHENAMINE HIPPURATE [Concomitant]
     Active Substance: METHENAMINE HIPPURATE
  5. PREDNISONE [Concomitant]
     Active Substance: PREDNISONE
  6. SODIUM BICARBONATE [Concomitant]

REACTIONS (4)
  - Urinary tract infection [None]
  - Kidney infection [None]
  - Communication disorder [None]
  - Product dose omission in error [None]

NARRATIVE: CASE EVENT DATE: 20240618
